FAERS Safety Report 9016538 (Version 2)
Quarter: 2013Q2

REPORT INFORMATION
  Report Type: Spontaneous
  Country: GR (occurrence: GR)
  Receive Date: 20130116
  Receipt Date: 20130419
  Transmission Date: 20140414
  Serious: Yes (Other)
  Sender: FDA-Public Use
  Company Number: GR-CELGENEUS-066-21880-13011404

PATIENT
  Age: 72 Year
  Sex: Female
  Weight: 81 kg

DRUGS (7)
  1. REVLIMID [Suspect]
     Indication: PLASMA CELL MYELOMA
     Dosage: 10 MILLIGRAM
     Route: 048
     Dates: start: 20120109, end: 20120827
  2. INSULIN [Concomitant]
     Indication: DIABETES MELLITUS
     Route: 065
  3. CLOPIDOGREL [Concomitant]
     Indication: CORONARY ARTERY DISEASE
     Dosage: 75 MILLIGRAM
     Route: 048
     Dates: start: 2006
  4. TINZAPARIN [Concomitant]
     Indication: PULMONARY EMBOLISM
     Dosage: 14000 IU (INTERNATIONAL UNIT)
     Route: 048
     Dates: start: 2009
  5. TINZAPARIN [Concomitant]
     Indication: DEEP VEIN THROMBOSIS
  6. CLONIDINE [Concomitant]
     Indication: HYPERTENSION
     Route: 048
     Dates: start: 2011
  7. CARVEDILOL [Concomitant]
     Indication: CORONARY ARTERY DISEASE
     Route: 048
     Dates: start: 2006

REACTIONS (1)
  - Breast cancer [Recovered/Resolved with Sequelae]
